FAERS Safety Report 7728850-4 (Version None)
Quarter: 2011Q3

REPORT INFORMATION
  Report Type: 
  Country: None (occurrence: None)
  Receive Date: 20110831
  Receipt Date: 20110831
  Transmission Date: 20111222
  Serious: No
  Sender: FDA-Public Use
  Company Number: None

PATIENT
  Age: 82 Year
  Sex: Female
  Weight: 61.2356 kg

DRUGS (1)
  1. PRADAXA [Suspect]
     Indication: DRUG THERAPY CHANGED

REACTIONS (5)
  - ABASIA [None]
  - ARTHRALGIA [None]
  - ORAL DISORDER [None]
  - APHAGIA [None]
  - PAIN IN EXTREMITY [None]
